FAERS Safety Report 23303276 (Version 2)
Quarter: 2024Q1

REPORT INFORMATION
  Report Type: Report from Study
  Country: US (occurrence: US)
  Receive Date: 20231215
  Receipt Date: 20240105
  Transmission Date: 20240410
  Serious: Yes (Other)
  Sender: FDA-Public Use
  Company Number: US-DECIPHERA PHARMACEUTICALS LLC-2023US001079

PATIENT
  Age: 56 Year
  Sex: Female

DRUGS (1)
  1. QINLOCK [Suspect]
     Active Substance: RIPRETINIB
     Indication: Gastrointestinal stromal tumour
     Dosage: 150 MILLIGRAM, QD
     Route: 048
     Dates: start: 20231103

REACTIONS (6)
  - Malignant neoplasm progression [Unknown]
  - Skin sensitisation [Unknown]
  - Skin irritation [Unknown]
  - Epistaxis [Unknown]
  - Abdominal tenderness [Unknown]
  - Alopecia [Unknown]
